FAERS Safety Report 24087078 (Version 1)
Quarter: 2024Q3

REPORT INFORMATION
  Report Type: Spontaneous
  Country: US (occurrence: US)
  Receive Date: 20240713
  Receipt Date: 20240713
  Transmission Date: 20241016
  Serious: Yes (Other)
  Sender: UROGEN PHARMA
  Company Number: US-UROGEN PHARMA LTD.-2024-UGN-000094

PATIENT

DRUGS (9)
  1. JELMYTO [Suspect]
     Active Substance: MITOMYCIN
     Indication: Product used for unknown indication
     Dosage: UNK(INSTILLATION)
     Route: 065
     Dates: end: 2024
  2. JELMYTO [Suspect]
     Active Substance: MITOMYCIN
     Dosage: UNK(INSTILLATION)
     Route: 065
  3. JELMYTO [Suspect]
     Active Substance: MITOMYCIN
     Dosage: UNK (INSTILLATION)
     Route: 065
  4. JELMYTO [Suspect]
     Active Substance: MITOMYCIN
     Dosage: UNK(INSTILLATION)
     Route: 065
  5. JELMYTO [Suspect]
     Active Substance: MITOMYCIN
     Dosage: UNK(INSTILLATION)
     Route: 065
  6. JELMYTO [Suspect]
     Active Substance: MITOMYCIN
     Dosage: UNK(INSTILLATION)
     Route: 065
  7. JELMYTO [Suspect]
     Active Substance: MITOMYCIN
     Dosage: UNK(INSTILLATION)
     Route: 065
  8. JELMYTO [Suspect]
     Active Substance: MITOMYCIN
     Dosage: UNK(INSTILLATION)
     Route: 065
  9. JELMYTO [Suspect]
     Active Substance: MITOMYCIN
     Dosage: UNK(INSTILLATION)
     Route: 065
     Dates: start: 20240703, end: 20240703

REACTIONS (1)
  - Renal necrosis [Not Recovered/Not Resolved]

NARRATIVE: CASE EVENT DATE: 20240703
